FAERS Safety Report 15907994 (Version 1)
Quarter: 2019Q1

REPORT INFORMATION
  Report Type: Spontaneous
  Country: US (occurrence: US)
  Receive Date: 20190204
  Receipt Date: 20190204
  Transmission Date: 20190417
  Serious: Yes (Other)
  Sender: FDA-Public Use
  Company Number: US-SA-2019SA024376

PATIENT
  Sex: Male

DRUGS (2)
  1. DULCOLAX NOS [Suspect]
     Active Substance: BISACODYL OR DOCUSATE SODIUM
     Indication: CONSTIPATION
     Dosage: 2 DF, QD
  2. MAGNESIA [MAGNESIUM HYDROXIDE] [Concomitant]
     Active Substance: MAGNESIUM HYDROXIDE

REACTIONS (4)
  - Intentional product use issue [Unknown]
  - Monogenic diabetes [Unknown]
  - Malignant melanoma [Unknown]
  - Diverticulitis [Unknown]
